FAERS Safety Report 16355910 (Version 1)
Quarter: 2019Q2

REPORT INFORMATION
  Report Type: Spontaneous
  Country: US (occurrence: US)
  Receive Date: 20190526
  Receipt Date: 20190526
  Transmission Date: 20190711
  Serious: No
  Sender: FDA-Public Use
  Company Number: US-TEVA-2019-US-1055327

PATIENT
  Sex: Female

DRUGS (1)
  1. AJOVY [Suspect]
     Active Substance: FREMANEZUMAB-VFRM
     Route: 065

REACTIONS (6)
  - Fatigue [Unknown]
  - Migraine [Unknown]
  - Depression [Unknown]
  - Emotional disorder [Unknown]
  - Constipation [Unknown]
  - Metrorrhagia [Unknown]
